FAERS Safety Report 24833891 (Version 14)
Quarter: 2025Q4

REPORT INFORMATION
  Report Type: Report from Study
  Country: KR (occurrence: KR)
  Receive Date: 20250112
  Receipt Date: 20251217
  Transmission Date: 20260117
  Serious: Yes (Hospitalization, Other)
  Sender: JOHNSON AND JOHNSON
  Company Number: KR-JNJFOC-20220525334

PATIENT
  Age: 51 Year
  Sex: Female

DRUGS (10)
  1. UPTRAVI [Suspect]
     Active Substance: SELEXIPAG
     Indication: Pulmonary arterial hypertension
     Route: 048
  2. MACITENTAN [Suspect]
     Active Substance: MACITENTAN
     Indication: Pulmonary arterial hypertension
     Route: 048
  3. REMODULIN [Suspect]
     Active Substance: TREPROSTINIL
     Indication: Pulmonary arterial hypertension
     Dosage: INJECTING REMODULIN AT 4.0 AND THE SYRINGE IS 3 ML.
  4. PANTOPRAZOLE SODIUM [Suspect]
     Active Substance: PANTOPRAZOLE SODIUM
     Indication: Product used for unknown indication
  5. SEROQUEL [Concomitant]
     Active Substance: QUETIAPINE FUMARATE
     Indication: Product used for unknown indication
  6. LASIX [Concomitant]
     Active Substance: FUROSEMIDE
     Indication: Product used for unknown indication
  7. ALDACTONE [Concomitant]
     Active Substance: SPIRONOLACTONE
     Indication: Product used for unknown indication
  8. FENTANYL [Concomitant]
     Active Substance: FENTANYL
     Indication: Product used for unknown indication
     Dosage: PATCH-TYPE NARCOTIC ANALGESIC
  9. SODIUM ALGINATE [Concomitant]
     Active Substance: SODIUM ALGINATE
     Indication: Product used for unknown indication
  10. SILDENAFIL CITRATE [Concomitant]
     Active Substance: SILDENAFIL CITRATE
     Indication: Product used for unknown indication

REACTIONS (82)
  - Pulmonary arterial hypertension [Unknown]
  - Dyspnoea [Not Recovered/Not Resolved]
  - Coronavirus infection [Unknown]
  - Pneumonia [Unknown]
  - Right-to-left cardiac shunt [Unknown]
  - Oxygen saturation decreased [Not Recovered/Not Resolved]
  - Choking [Unknown]
  - Haemorrhage [Unknown]
  - Tongue paralysis [Unknown]
  - Catheterisation cardiac [Unknown]
  - Angioedema [Unknown]
  - Dizziness [Not Recovered/Not Resolved]
  - Fall [Unknown]
  - Abdominal pain upper [Unknown]
  - Injection site pain [Not Recovered/Not Resolved]
  - Cyanosis [Not Recovered/Not Resolved]
  - Back pain [Not Recovered/Not Resolved]
  - Diarrhoea [Unknown]
  - Tendonitis [Unknown]
  - Malaise [Unknown]
  - Dry mouth [Unknown]
  - Arthritis [Unknown]
  - Cardiac murmur [Unknown]
  - Asthenia [Not Recovered/Not Resolved]
  - Headache [Not Recovered/Not Resolved]
  - Cardiomegaly [Unknown]
  - Behaviour disorder [Unknown]
  - Taste disorder [Unknown]
  - Parosmia [Unknown]
  - Palpitations [Unknown]
  - Peripheral swelling [Not Recovered/Not Resolved]
  - Loss of personal independence in daily activities [Unknown]
  - Pollakiuria [Unknown]
  - Memory impairment [Unknown]
  - Depression [Unknown]
  - Hyperhidrosis [Unknown]
  - Haematuria [Unknown]
  - Discomfort [Unknown]
  - Injection site inflammation [Unknown]
  - Anaemia [Unknown]
  - Tooth loss [Unknown]
  - Product dose omission issue [Unknown]
  - Chest discomfort [Not Recovered/Not Resolved]
  - Dyspepsia [Unknown]
  - Rhinalgia [Unknown]
  - Paraesthesia [Unknown]
  - Insomnia [Recovering/Resolving]
  - Asthenia [Unknown]
  - Weight fluctuation [Unknown]
  - Head injury [Unknown]
  - Arthralgia [Unknown]
  - Toothache [Unknown]
  - Thyroid disorder [Unknown]
  - Frustration tolerance decreased [Unknown]
  - Decreased appetite [Unknown]
  - Tongue injury [Recovering/Resolving]
  - Swelling [Unknown]
  - Pain in extremity [Not Recovered/Not Resolved]
  - Snoring [Unknown]
  - Mass [Unknown]
  - Breast induration [Recovering/Resolving]
  - General physical condition abnormal [Unknown]
  - Pain [Unknown]
  - Gait disturbance [Unknown]
  - Feeling cold [Recovered/Resolved]
  - Hypoacusis [Unknown]
  - Cough [Not Recovered/Not Resolved]
  - Ligament rupture [Unknown]
  - Nausea [Unknown]
  - Lip dry [Not Recovered/Not Resolved]
  - Hypokinesia [Unknown]
  - Chest pain [Not Recovered/Not Resolved]
  - Ear pain [Unknown]
  - Oropharyngeal pain [Unknown]
  - Dysphonia [Not Recovered/Not Resolved]
  - Neck pain [Not Recovered/Not Resolved]
  - Dysuria [Unknown]
  - Tinnitus [Unknown]
  - Purulent discharge [Unknown]
  - Faeces discoloured [Unknown]
  - Epistaxis [Unknown]
  - Haemoptysis [Not Recovered/Not Resolved]

NARRATIVE: CASE EVENT DATE: 20220101
